FAERS Safety Report 5721069-8 (Version None)
Quarter: 2008Q2

REPORT INFORMATION
  Report Type: 
  Country: None (occurrence: None)
  Receive Date: 20080423
  Receipt Date: 20071204
  Transmission Date: 20081010
  Serious: Yes (Death)
  Sender: FDA-Public Use
  Company Number: 251595

PATIENT
  Sex: Female

DRUGS (5)
  1. AVASTIN [Suspect]
     Indication: LUNG CANCER METASTATIC
     Dosage: 15MG/KG,Q3W
  2. TAXOTERE [Concomitant]
  3. CISPLATIN [Concomitant]
  4. LORTAB [Concomitant]
  5. ADVAIR DISKUS 100/50 [Concomitant]

REACTIONS (2)
  - HAEMATEMESIS [None]
  - HAEMOPTYSIS [None]
